FAERS Safety Report 7117964-8 (Version None)
Quarter: 2010Q4

REPORT INFORMATION
  Report Type: 
  Country: None (occurrence: None)
  Receive Date: 20101118
  Receipt Date: 20101118
  Transmission Date: 20110411
  Serious: Yes (Other)
  Sender: FDA-Public Use
  Company Number: None

PATIENT
  Age: 39 Year
  Sex: Female
  Weight: 79.3795 kg

DRUGS (2)
  1. SAPHRIS [Suspect]
     Indication: BIPOLAR DISORDER
     Dosage: 20MG AT NIGHT PO
     Route: 048
     Dates: start: 20090101, end: 20101117
  2. SAPHRIS [Suspect]
     Indication: SCHIZOAFFECTIVE DISORDER
     Dosage: 20MG AT NIGHT PO
     Route: 048
     Dates: start: 20090101, end: 20101117

REACTIONS (3)
  - ALOPECIA [None]
  - LOSS OF LIBIDO [None]
  - TARDIVE DYSKINESIA [None]
